FAERS Safety Report 4830654-7 (Version None)
Quarter: 2005Q4

REPORT INFORMATION
  Report Type: 
  Country: None (occurrence: None)
  Receive Date: 20051115
  Receipt Date: 20051102
  Transmission Date: 20060501
  Serious: Yes (Hospitalization, Other)
  Sender: FDA-Public Use
  Company Number: 2005149729

PATIENT
  Sex: Female

DRUGS (8)
  1. ZYVOX [Suspect]
     Indication: ILL-DEFINED DISORDER
     Dosage: 1200 MG (600 MG, 2 IN 1 D), ORAL
     Route: 048
     Dates: end: 20051010
  2. RIFAMPICIN [Suspect]
     Indication: ILL-DEFINED DISORDER
     Dosage: 900 MG (450 MG,  2 IN 1 D), ORAL
     Route: 048
     Dates: end: 20051010
  3. SINTROM [Concomitant]
  4. ZOLOFT [Concomitant]
  5. VALTREX [Concomitant]
  6. BACTRIM [Concomitant]
  7. PANTOPRAZOLE SODIUM [Concomitant]
  8. PASPERTIN (METOCLOPRAMIDE HYDROCHLORIDE) [Concomitant]

REACTIONS (4)
  - HEPATIC FUNCTION ABNORMAL [None]
  - HEPATOCELLULAR DAMAGE [None]
  - JAUNDICE [None]
  - OCULAR ICTERUS [None]
